FAERS Safety Report 13047054 (Version 1)
Quarter: 2016Q4

REPORT INFORMATION
  Report Type: Spontaneous
  Country: US (occurrence: US)
  Receive Date: 20161220
  Receipt Date: 20161220
  Transmission Date: 20170207
  Serious: Yes (Other)
  Sender: FDA-Public Use
  Company Number: US-APOTEX-2016AP015997

PATIENT
  Age: 45 Year
  Sex: Female

DRUGS (1)
  1. LAMIVUDINE TABLETS [Suspect]
     Active Substance: LAMIVUDINE
     Indication: PRODUCT USED FOR UNKNOWN INDICATION
     Dosage: UNK
     Route: 065

REACTIONS (4)
  - Sepsis [Recovering/Resolving]
  - Respiratory failure [Recovering/Resolving]
  - Carnitine deficiency [Unknown]
  - Acute pulmonary oedema [Recovered/Resolved]
